FAERS Safety Report 14086559 (Version 3)
Quarter: 2017Q4

REPORT INFORMATION
  Report Type: Spontaneous
  Country: US (occurrence: US)
  Receive Date: 20171013
  Receipt Date: 20171213
  Transmission Date: 20180321
  Serious: No
  Sender: FDA-Public Use
  Company Number: US-ASTRAZENECA-2017SF03794

PATIENT
  Age: 25662 Day
  Sex: Female
  Weight: 54 kg

DRUGS (2)
  1. IRESSA [Suspect]
     Active Substance: GEFITINIB
     Indication: BRONCHIAL CARCINOMA
     Dosage: 250.0MG UNKNOWN
     Route: 048
     Dates: start: 20170706
  2. IRESSA [Suspect]
     Active Substance: GEFITINIB
     Indication: BRONCHIAL CARCINOMA
     Dosage: 250.0MG UNKNOWN
     Route: 048
     Dates: start: 20171102

REACTIONS (6)
  - Skin irritation [Unknown]
  - Rash [Recovering/Resolving]
  - Off label use [Not Recovered/Not Resolved]
  - Product use issue [Not Recovered/Not Resolved]
  - Constipation [Unknown]
  - Pruritus [Unknown]

NARRATIVE: CASE EVENT DATE: 20170814
